FAERS Safety Report 13878035 (Version 21)
Quarter: 2019Q1

REPORT INFORMATION
  Report Type: Report from Study
  Country: None (occurrence: NL)
  Receive Date: 20170817
  Receipt Date: 20190308
  Transmission Date: 20190417
  Serious: Yes (Hospitalization)
  Sender: FDA-Public Use
  Company Number: NL-ABBVIE-17K-114-2066674-00

PATIENT
  Age: 56 Year
  Sex: Male
  Weight: 58 kg

DRUGS (12)
  1. SINEMET CR [Concomitant]
     Active Substance: CARBIDOPA\LEVODOPA
     Indication: PRODUCT USED FOR UNKNOWN INDICATION
     Dosage: FOR NIGHT
  2. DUODOPA [Suspect]
     Active Substance: CARBIDOPA\LEVODOPA
     Dosage: MD 6.5, CD 5.3, ED 3.5
     Route: 050
     Dates: start: 2017
  3. DUODOPA [Suspect]
     Active Substance: CARBIDOPA\LEVODOPA
     Dosage: MD: 6.5, CD: 5.1, ED: 3.5
     Route: 050
  4. DUODOPA [Suspect]
     Active Substance: CARBIDOPA\LEVODOPA
     Dosage: MD 5.2 CD 4.9 ED 3.5
     Route: 050
  5. DUODOPA [Suspect]
     Active Substance: CARBIDOPA\LEVODOPA
     Indication: PARKINSON^S DISEASE
     Dosage: MD: 9, CD: 5.8, ED: 4
     Route: 050
     Dates: start: 20170731, end: 2017
  6. SIFROL [Concomitant]
     Active Substance: PRAMIPEXOLE
     Indication: PRODUCT USED FOR UNKNOWN INDICATION
  7. DUODOPA [Suspect]
     Active Substance: CARBIDOPA\LEVODOPA
     Dosage: MORNING DOSE: 6.5, CONTINUOUS DOSE: 5.3, EXTRA DOSE: 3.5
     Route: 050
  8. DUODOPA [Suspect]
     Active Substance: CARBIDOPA\LEVODOPA
     Dosage: MD: 5.7
     Route: 050
  9. DUODOPA [Suspect]
     Active Substance: CARBIDOPA\LEVODOPA
     Dosage: MD: 6.0, CD: 4.9, ED: 3.5
     Route: 050
  10. DUODOPA [Suspect]
     Active Substance: CARBIDOPA\LEVODOPA
     Dosage: MD 5.2 CD 4.9ML ED 3 ML
     Route: 050
  11. MADOPAR [Concomitant]
     Active Substance: BENSERAZIDE HYDROCHLORIDE\LEVODOPA
     Indication: PRODUCT USED FOR UNKNOWN INDICATION
  12. DUODOPA [Suspect]
     Active Substance: CARBIDOPA\LEVODOPA
     Dosage: DOSE REDUCED
     Route: 050
     Dates: start: 20170816, end: 2017

REACTIONS (48)
  - Malaise [Recovering/Resolving]
  - Inappropriate schedule of product administration [Recovered/Resolved]
  - Hyperkinesia [Not Recovered/Not Resolved]
  - Stoma site erythema [Recovered/Resolved]
  - Dystonia [Not Recovered/Not Resolved]
  - Panic attack [Not Recovered/Not Resolved]
  - Device occlusion [Recovered/Resolved]
  - Hyperhidrosis [Not Recovered/Not Resolved]
  - Diarrhoea [Not Recovered/Not Resolved]
  - Gait disturbance [Not Recovered/Not Resolved]
  - Dysuria [Recovered/Resolved]
  - Reduced facial expression [Not Recovered/Not Resolved]
  - Chorea [Not Recovered/Not Resolved]
  - Fall [Not Recovered/Not Resolved]
  - Drug effect delayed [Unknown]
  - On and off phenomenon [Recovered/Resolved]
  - Dyskinesia [Recovering/Resolving]
  - Intentional product misuse [Recovered/Resolved]
  - Bradykinesia [Not Recovered/Not Resolved]
  - Restlessness [Not Recovered/Not Resolved]
  - Dyspnoea [Not Recovered/Not Resolved]
  - Stoma site pain [Recovered/Resolved]
  - On and off phenomenon [Recovered/Resolved]
  - Freezing phenomenon [Not Recovered/Not Resolved]
  - Chromaturia [Recovered/Resolved]
  - Parkinson^s disease [Recovering/Resolving]
  - Carpal tunnel syndrome [Not Recovered/Not Resolved]
  - Fear [Recovered/Resolved]
  - Weight increased [Not Recovered/Not Resolved]
  - Abnormal dreams [Not Recovered/Not Resolved]
  - Hyperventilation [Recovered/Resolved]
  - Panic reaction [Not Recovered/Not Resolved]
  - Viral infection [Not Recovered/Not Resolved]
  - Gastric disorder [Not Recovered/Not Resolved]
  - Hypokinesia [Not Recovered/Not Resolved]
  - Abnormal dreams [Recovered/Resolved]
  - On and off phenomenon [Not Recovered/Not Resolved]
  - Constipation [Recovered/Resolved]
  - Anxiety [Not Recovered/Not Resolved]
  - Muscle rigidity [Not Recovered/Not Resolved]
  - Nocturia [Not Recovered/Not Resolved]
  - Gait disturbance [Not Recovered/Not Resolved]
  - Tremor [Not Recovered/Not Resolved]
  - Muscle spasms [Not Recovered/Not Resolved]
  - Stoma site reaction [Recovered/Resolved]
  - Drug ineffective [Recovered/Resolved]
  - Nausea [Not Recovered/Not Resolved]
  - Neuropathy peripheral [Not Recovered/Not Resolved]

NARRATIVE: CASE EVENT DATE: 2017
